FAERS Safety Report 6124124-6 (Version None)
Quarter: 2009Q1

REPORT INFORMATION
  Report Type: 
  Country: None (occurrence: None)
  Receive Date: 20090319
  Receipt Date: 20090305
  Transmission Date: 20090719
  Serious: Yes (Death)
  Sender: FDA-Public Use
  Company Number: AT-ROCHE-615492

PATIENT
  Sex: Male
  Weight: 48.8 kg

DRUGS (3)
  1. XELODA [Suspect]
     Dosage: FREQUENCY REPORTED AS 3-0-3
     Route: 048
     Dates: end: 20090202
  2. OXALIPLATIN [Concomitant]
     Dates: end: 20090119
  3. FRAGMIN [Concomitant]
     Dosage: DOSE: 10000 IE.

REACTIONS (4)
  - ACUTE CORONARY SYNDROME [None]
  - DYSPNOEA [None]
  - PERICARDIAL EFFUSION [None]
  - RESPIRATORY DISTRESS [None]
